FAERS Safety Report 10061922 (Version 2)
Quarter: 2014Q2

REPORT INFORMATION
  Report Type: Spontaneous
  Country: IT (occurrence: None)
  Receive Date: 20140403
  Receipt Date: 20140520
  Transmission Date: 20141212
  Serious: Yes (Other)
  Sender: FDA-Public Use
  Company Number: AUR-APL-2014-03993

PATIENT
  Age: 74 Year
  Sex: Female

DRUGS (7)
  1. RAMIPRIL (RAMIPRIL) [Suspect]
     Indication: PRODUCT USED FOR UNKNOWN INDICATION
     Dosage: (2.5 MG,1 D)
     Route: 048
     Dates: start: 20130121, end: 20140120
  2. COAPROVEL [Suspect]
     Indication: PRODUCT USED FOR UNKNOWN INDICATION
     Dosage: (1 DOSAGE FORMS, 1 D)
     Route: 048
     Dates: start: 20130121, end: 20140120
  3. NORVASC (AMLODIPINE BESILATE) [Suspect]
     Indication: PRODUCT USED FOR UNKNOWN INDICATION
     Dosage: (1 DOSAGE FORMS, 1 D)
     Route: 048
     Dates: start: 20130121, end: 20140120
  4. LASIX (FUROSEMIDE) [Suspect]
     Indication: PRODUCT USED FOR UNKNOWN INDICATION
     Route: 048
     Dates: start: 20130121, end: 20140120
  5. NIFEDIPINE [Suspect]
     Indication: PRODUCT USED FOR UNKNOWN INDICATION
     Dosage: 30 GTT, TOTAL
     Route: 048
     Dates: start: 20140120, end: 20140120
  6. METFORMIN HYDROCHLORIDE [Concomitant]
  7. LANSOPRAZOLE [Concomitant]

REACTIONS (2)
  - Hypertension [None]
  - Drug ineffective [None]
